FAERS Safety Report 21083417 (Version 3)
Quarter: 2025Q3

REPORT INFORMATION
  Report Type: Spontaneous
  Country: US (occurrence: US)
  Receive Date: 20220714
  Receipt Date: 20250710
  Transmission Date: 20251021
  Serious: Yes (Hospitalization, Other)
  Sender: JAZZ
  Company Number: US-GW PHARMA-2022-US-023021

PATIENT
  Sex: Male
  Weight: 14 kg

DRUGS (1)
  1. EPIDIOLEX [Suspect]
     Active Substance: CANNABIDIOL
     Indication: Epilepsy
     Dosage: 2.5 MILLILITER, BID
     Route: 048
     Dates: start: 20220614

REACTIONS (3)
  - Pneumonia [Recovered/Resolved]
  - Seizure [Recovered/Resolved]
  - COVID-19 [Not Recovered/Not Resolved]
